FAERS Safety Report 7361105-9 (Version None)
Quarter: 2011Q1

REPORT INFORMATION
  Report Type: 
  Country: None (occurrence: None)
  Receive Date: 20110318
  Receipt Date: 20110309
  Transmission Date: 20110831
  Serious: Yes (Death)
  Sender: FDA-Public Use
  Company Number: FR-ROCHE-764942

PATIENT
  Sex: Female

DRUGS (3)
  1. CISPLATIN [Suspect]
     Dosage: FREQUENCY: ONCE.
     Route: 042
     Dates: start: 20110120, end: 20110120
  2. AVASTIN [Suspect]
     Dosage: STRENGTH: 25 MG/ML, FORM: INJECTABLE SOLUTION, FREQUENCY: ONCE.
     Route: 042
     Dates: start: 20110120, end: 20110120
  3. PEMETREXED [Suspect]
     Dosage: 500 MG, FORM: INJECTABLE SOLUTION, FREQUENCY: ONCE.
     Route: 042
     Dates: start: 20110120, end: 20110120

REACTIONS (7)
  - METRORRHAGIA [None]
  - THROMBOCYTOPENIA [None]
  - EPISTAXIS [None]
  - RENAL FAILURE ACUTE [None]
  - STAPHYLOCOCCAL INFECTION [None]
  - FEBRILE NEUTROPENIA [None]
  - DEVICE RELATED INFECTION [None]
